FAERS Safety Report 21665046 (Version 1)
Quarter: 2022Q4

REPORT INFORMATION
  Report Type: Spontaneous
  Country: US (occurrence: None)
  Receive Date: 20221130
  Receipt Date: 20221130
  Transmission Date: 20230113
  Serious: No
  Sender: FDA-Public Use
  Company Number: 2022A374838

PATIENT
  Age: 74 Year
  Sex: Female
  Weight: 56.7 kg

DRUGS (1)
  1. SYMBICORT [Suspect]
     Active Substance: BUDESONIDE\FORMOTEROL FUMARATE DIHYDRATE
     Indication: Asthma
     Route: 055

REACTIONS (7)
  - Incorrect dose administered by device [Unknown]
  - Product dose omission issue [Unknown]
  - Corrective lens user [Not Recovered/Not Resolved]
  - Cataract [Unknown]
  - Device use issue [Unknown]
  - Device malfunction [Unknown]
  - Device delivery system issue [Unknown]

NARRATIVE: CASE EVENT DATE: 20221110
